FAERS Safety Report 7224448-5 (Version None)
Quarter: 2011Q1

REPORT INFORMATION
  Report Type: 
  Country: None (occurrence: None)
  Receive Date: 20110113
  Receipt Date: 20110104
  Transmission Date: 20110831
  Serious: Yes (Other)
  Sender: FDA-Public Use
  Company Number: US-SANOFI-AVENTIS-2010SA015150

PATIENT
  Age: 73 Year
  Sex: Female
  Weight: 57 kg

DRUGS (8)
  1. MULTAQ [Suspect]
     Route: 048
     Dates: start: 20100118
  2. XANAX [Concomitant]
  3. COUMADIN [Concomitant]
     Dosage: 1MG, 1MG, 2MG FOR THREE DAYS THEN RESTART AT 1MG, 1MG, 2MG
  4. LEVOTHYROXINE [Concomitant]
     Dosage: .112MG AND .125MG QOD
  5. SIMVASTATIN [Concomitant]
  6. COZAAR [Concomitant]
  7. ALENDRONATE [Concomitant]
  8. MULTI-VITAMINS [Concomitant]

REACTIONS (7)
  - ASTHENIA [None]
  - SENSORY DISTURBANCE [None]
  - ATRIAL FIBRILLATION [None]
  - DYSPNOEA [None]
  - PNEUMONIA [None]
  - COUGH [None]
  - DRUG INEFFECTIVE [None]
